FAERS Safety Report 9018844 (Version 1)
Quarter: 2013Q1

REPORT INFORMATION
  Report Type: Spontaneous
  Country: US (occurrence: US)
  Receive Date: 20130118
  Receipt Date: 20130118
  Transmission Date: 20140127
  Serious: Yes (Other)
  Sender: FDA-Public Use
  Company Number: US-SANOFI-AVENTIS-2012SA092448

PATIENT
  Age: 7 Year
  Sex: Male

DRUGS (1)
  1. LASIX [Suspect]
     Route: 065

REACTIONS (1)
  - Hypokalaemia [Recovered/Resolved with Sequelae]
